FAERS Safety Report 11655645 (Version 1)
Quarter: 2015Q4

REPORT INFORMATION
  Report Type: Spontaneous
  Country: US (occurrence: US)
  Receive Date: 20151023
  Receipt Date: 20151023
  Transmission Date: 20160304
  Serious: No
  Sender: FDA-Public Use
  Company Number: US-ASTELLAS-2015US014032

PATIENT
  Sex: Male

DRUGS (4)
  1. MYCAMINE [Suspect]
     Active Substance: MICAFUNGIN SODIUM
     Indication: PNEUMOTHORAX TRAUMATIC
     Route: 042
     Dates: start: 20150403, end: 20150405
  2. MYCAMINE [Suspect]
     Active Substance: MICAFUNGIN SODIUM
     Indication: RESPIRATORY DISORDER
  3. MYCAMINE [Suspect]
     Active Substance: MICAFUNGIN SODIUM
     Indication: DYSPHAGIA
  4. MYCAMINE [Suspect]
     Active Substance: MICAFUNGIN SODIUM
     Indication: TOOTH LOSS

REACTIONS (1)
  - Product use issue [Unknown]
